FAERS Safety Report 4600452-8 (Version None)
Quarter: 2005Q1

REPORT INFORMATION
  Report Type: 
  Country: None (occurrence: None)
  Receive Date: 20050304
  Receipt Date: 20050222
  Transmission Date: 20050727
  Serious: Yes (Death)
  Sender: FDA-Public Use
  Company Number: 2005-DE-00709GD

PATIENT
  Age: 43 Year
  Sex: Male

DRUGS (2)
  1. MORPHINE (MORPHINE) [Suspect]
  2. METHAMPHETAMINE HCL [Suspect]
     Dosage: IV
     Route: 042

REACTIONS (8)
  - BRAIN OEDEMA [None]
  - DRUG ABUSER [None]
  - DRUG TOXICITY [None]
  - HEPATIC STEATOSIS [None]
  - HEPATITIS C [None]
  - HYPERTHERMIA [None]
  - PULMONARY OEDEMA [None]
  - VOMITING [None]
